FAERS Safety Report 16324018 (Version 1)
Quarter: 2019Q2

REPORT INFORMATION
  Report Type: Spontaneous
  Country: ES (occurrence: ES)
  Receive Date: 20190517
  Receipt Date: 20190517
  Transmission Date: 20190711
  Serious: Yes (Hospitalization, Other)
  Sender: FDA-Public Use
  Company Number: ES-ACCORD-127571

PATIENT
  Age: 77 Year
  Sex: Male

DRUGS (1)
  1. CAPECITABINE. [Suspect]
     Active Substance: CAPECITABINE
     Indication: COLON CANCER STAGE III

REACTIONS (6)
  - Hypocalcaemia [Unknown]
  - Hypoalbuminaemia [Unknown]
  - Coagulopathy [Unknown]
  - Leukopenia [Unknown]
  - Proctalgia [Unknown]
  - Enteritis [Unknown]
